FAERS Safety Report 5362304-8 (Version None)
Quarter: 2007Q2

REPORT INFORMATION
  Report Type: 
  Country: None (occurrence: None)
  Receive Date: 20070619
  Receipt Date: 20070608
  Transmission Date: 20071010
  Serious: Yes (Other)
  Sender: FDA-Public Use
  Company Number: B0465292A

PATIENT
  Age: 57 Year
  Sex: Female

DRUGS (4)
  1. MALARONE [Suspect]
     Route: 048
  2. LIPITOR [Concomitant]
     Dosage: 20MG PER DAY
  3. DIOVAN [Concomitant]
     Dosage: 80MG PER DAY
  4. VALSARTAN [Concomitant]

REACTIONS (5)
  - CONFUSIONAL STATE [None]
  - DEPRESSION [None]
  - FEELING ABNORMAL [None]
  - NIGHTMARE [None]
  - SLEEP DISORDER [None]
